FAERS Safety Report 19313506 (Version 1)
Quarter: 2021Q2

REPORT INFORMATION
  Report Type: Spontaneous
  Country: CN (occurrence: CN)
  Receive Date: 20210527
  Receipt Date: 20210527
  Transmission Date: 20210717
  Serious: Yes (Other)
  Sender: FDA-Public Use
  Company Number: CN-ROCHE-2832656

PATIENT
  Age: 52 Year
  Sex: Female

DRUGS (9)
  1. XELODA [Suspect]
     Active Substance: CAPECITABINE
     Dosage: XELOX+BEVACIZUMAB 9 CYCLES,ON 30 JUL 2020, 20 AUG 2020, 21 SEPT 2020, 12 OCT 2020, 2 NOV 2020, 30 NO
     Route: 048
     Dates: start: 20200730
  2. XELODA [Suspect]
     Active Substance: CAPECITABINE
     Indication: LARGE INTESTINAL ULCER
     Dosage: XELOX,7 CYCLES OF CHEMOTHERAPY
     Route: 048
     Dates: start: 20130107, end: 20130506
  3. BEVACIZUMAB. [Concomitant]
     Active Substance: BEVACIZUMAB
     Dosage: XELOX+BEVACIZUMAB 9 CYCLES,ON 30 JUL 2020, 20 AUG 2020, 21 SEPT 2020, 12 OCT 2020, 2 NOV 2020, 30 NO
     Dates: start: 20200730
  4. OXALIPLATIN. [Concomitant]
     Active Substance: OXALIPLATIN
  5. CALCIUM FOLINATE [Concomitant]
     Active Substance: LEUCOVORIN CALCIUM
  6. CETUXIMAB. [Concomitant]
     Active Substance: CETUXIMAB
  7. 5?FLUOROURACIL [Concomitant]
     Active Substance: FLUOROURACIL
  8. XELODA [Suspect]
     Active Substance: CAPECITABINE
     Dosage: XELOX+CET ON 6 JAN 2020, 18 FEB 2020, 1 APR 2020, 15 MAY 2020, 12 JUN 2020, 6 JUL 2020
     Route: 048
     Dates: start: 20191111
  9. IRINOTECAN [Concomitant]
     Active Substance: IRINOTECAN

REACTIONS (4)
  - Neutrophil count decreased [Unknown]
  - Transaminases increased [Unknown]
  - Rash [Unknown]
  - Anaphylactic shock [Unknown]

NARRATIVE: CASE EVENT DATE: 2019
